FAERS Safety Report 9333183 (Version 2)
Quarter: 2013Q3

REPORT INFORMATION
  Report Type: Spontaneous
  Country: US (occurrence: None)
  Receive Date: 20130604
  Receipt Date: 20130703
  Transmission Date: 20140515
  Serious: Yes (Other)
  Sender: FDA-Public Use
  Company Number: 2013P1006478

PATIENT
  Age: 65 Year
  Sex: Male
  Weight: 94.35 kg

DRUGS (5)
  1. TERAZOSIN [Suspect]
     Indication: PROSTATOMEGALY
     Route: 048
     Dates: start: 201204
  2. AMLODIPINE [Concomitant]
  3. BESYLATE [Concomitant]
  4. PRAVASTATIN [Concomitant]
  5. SIDENAFIL CITRATE [Concomitant]

REACTIONS (3)
  - Fall [None]
  - Muscle disorder [None]
  - Back pain [None]
